FAERS Safety Report 11849132 (Version 1)
Quarter: 2015Q4

REPORT INFORMATION
  Report Type: Spontaneous
  Country: US (occurrence: None)
  Receive Date: 20151217
  Receipt Date: 20151217
  Transmission Date: 20160305
  Serious: Yes (Other)
  Sender: FDA-Public Use
  Company Number: None

PATIENT
  Age: 45 Year
  Sex: Female
  Weight: 45.36 kg

DRUGS (1)
  1. KERANIQUE LIFT AND GROW TREATMENT SPRAY (MINOXIDIL) [Suspect]
     Active Substance: MINOXIDIL
     Indication: HAIR GROWTH ABNORMAL
     Dosage: APPLIED TO A SURFACE, USUALLY THE SKIN

REACTIONS (4)
  - Trichorrhexis [None]
  - Hair texture abnormal [None]
  - Alopecia [None]
  - Product quality issue [None]
